FAERS Safety Report 9607705 (Version 1)
Quarter: 2013Q4

REPORT INFORMATION
  Report Type: Spontaneous
  Country: FR (occurrence: None)
  Receive Date: 20131004
  Receipt Date: 20131004
  Transmission Date: 20140711
  Serious: Yes (Hospitalization)
  Sender: FDA-Public Use
  Company Number: 1907014

PATIENT
  Age: 62 Year
  Sex: Female

DRUGS (6)
  1. CARBOPLATIN [Suspect]
     Indication: OVARIAN CANCER
     Route: 042
     Dates: start: 20090424, end: 20090424
  2. PACLITAXEL EBEWE) [Concomitant]
  3. POLARAMINE [Concomitant]
  4. METHYLPREDNISOLONE MERCK [Concomitant]
  5. ZOPHREN [Suspect]
  6. RANIPLEX [Concomitant]

REACTIONS (3)
  - Cough [None]
  - Pruritus [None]
  - Diarrhoea [None]
